FAERS Safety Report 15713954 (Version 1)
Quarter: 2018Q4

REPORT INFORMATION
  Report Type: Spontaneous
  Country: JP (occurrence: JP)
  Receive Date: 20181212
  Receipt Date: 20181212
  Transmission Date: 20190205
  Serious: Yes (Hospitalization)
  Sender: FDA-Public Use
  Company Number: JP-JNJFOC-20181207544

PATIENT
  Age: 74 Year
  Sex: Female

DRUGS (6)
  1. REMINYL [Suspect]
     Active Substance: GALANTAMINE
     Indication: PROGRESSIVE SUPRANUCLEAR PALSY
     Route: 048
  2. DROXIDOPA [Suspect]
     Active Substance: DROXIDOPA
     Indication: PROGRESSIVE SUPRANUCLEAR PALSY
     Route: 048
  3. REMINYL [Suspect]
     Active Substance: GALANTAMINE
     Indication: PROGRESSIVE SUPRANUCLEAR PALSY
     Route: 048
  4. LEVODOPA [Suspect]
     Active Substance: LEVODOPA
     Indication: PROGRESSIVE SUPRANUCLEAR PALSY
     Route: 065
  5. LEVODOPA [Suspect]
     Active Substance: LEVODOPA
     Indication: PROGRESSIVE SUPRANUCLEAR PALSY
     Route: 065
  6. DROXIDOPA [Suspect]
     Active Substance: DROXIDOPA
     Indication: PROGRESSIVE SUPRANUCLEAR PALSY
     Route: 048

REACTIONS (3)
  - Product use in unapproved indication [Unknown]
  - Off label use [Unknown]
  - Dystonia [Recovered/Resolved]
